FAERS Safety Report 10908245 (Version 1)
Quarter: 2015Q1

REPORT INFORMATION
  Report Type: Report from Study
  Country: US (occurrence: US)
  Receive Date: 20150312
  Receipt Date: 20150312
  Transmission Date: 20150721
  Serious: Yes (Hospitalization)
  Sender: FDA-Public Use
  Company Number: US-ABBVIE-15K-163-1356949-00

PATIENT
  Sex: Female
  Weight: 54.48 kg

DRUGS (4)
  1. HUMIRA [Suspect]
     Active Substance: ADALIMUMAB
     Route: 065
     Dates: start: 201407, end: 201407
  2. HUMIRA [Suspect]
     Active Substance: ADALIMUMAB
     Indication: CROHN^S DISEASE
     Route: 065
     Dates: start: 201407, end: 201407
  3. HUMIRA [Suspect]
     Active Substance: ADALIMUMAB
     Route: 065
     Dates: start: 201408, end: 201410
  4. LEVOTHYROXINE [Concomitant]
     Active Substance: LEVOTHYROXINE
     Indication: HYPOTHYROIDISM

REACTIONS (6)
  - Procedural pain [Unknown]
  - Colitis [Recovered/Resolved]
  - Abdominal adhesions [Recovered/Resolved]
  - Urinary tract infection [Recovered/Resolved]
  - Fistula [Recovered/Resolved]
  - Procedural vomiting [Recovered/Resolved]

NARRATIVE: CASE EVENT DATE: 2014
